FAERS Safety Report 5531546-0 (Version None)
Quarter: 2007Q4

REPORT INFORMATION
  Report Type: 
  Country: None (occurrence: None)
  Receive Date: 20071128
  Receipt Date: 20071113
  Transmission Date: 20080405
  Serious: Yes (Other)
  Sender: FDA-Public Use
  Company Number: 2007BM000178

PATIENT
  Age: 67 Year
  Sex: Female

DRUGS (4)
  1. PREDNISONE [Suspect]
     Indication: CHRONIC LYMPHOCYTIC LEUKAEMIA
     Dosage: 60 M; QD;
  2. CHLORAMBUCIL (CHLORAMBUCIL) [Suspect]
     Indication: CHRONIC LYMPHOCYTIC LEUKAEMIA
  3. FLUDARABINE PHOSPHATE [Suspect]
     Indication: CHRONIC LYMPHOCYTIC LEUKAEMIA
  4. ORAPRED [Suspect]

REACTIONS (5)
  - BONE MARROW FAILURE [None]
  - CATARACT [None]
  - CYTOMEGALOVIRUS CHORIORETINITIS [None]
  - INJECTION SITE REACTION [None]
  - OPTIC ATROPHY [None]
